FAERS Safety Report 15327532 (Version 2)
Quarter: 2018Q3

REPORT INFORMATION
  Report Type: Spontaneous
  Country: US (occurrence: US)
  Receive Date: 20180828
  Receipt Date: 20180930
  Transmission Date: 20181010
  Serious: Yes (Hospitalization, Other)
  Sender: FDA-Public Use
  Company Number: US-NOVOPROD-610719

PATIENT
  Age: 68 Year
  Sex: Male

DRUGS (1)
  1. LEVEMIR [Suspect]
     Active Substance: INSULIN DETEMIR
     Indication: TYPE 2 DIABETES MELLITUS
     Dosage: 45 U, QD
     Route: 058

REACTIONS (14)
  - Loss of consciousness [Recovered/Resolved]
  - Wrong technique in product usage process [Recovered/Resolved]
  - Injection site warmth [Recovering/Resolving]
  - Fall [Recovered/Resolved]
  - Product use complaint [Unknown]
  - Hyperhidrosis [Recovered/Resolved]
  - Pallor [Recovered/Resolved]
  - Injection site haemorrhage [Recovered/Resolved]
  - Injection site erythema [Recovering/Resolving]
  - Deep vein thrombosis [Recovering/Resolving]
  - Injection site swelling [Recovering/Resolving]
  - Pulmonary embolism [Recovered/Resolved]
  - Drug ineffective [Recovered/Resolved]
  - Injection site pain [Recovering/Resolving]

NARRATIVE: CASE EVENT DATE: 20180413
